FAERS Safety Report 20480123 (Version 1)
Quarter: 2022Q1

REPORT INFORMATION
  Report Type: Spontaneous
  Country: US (occurrence: None)
  Receive Date: 20220215
  Receipt Date: 20220215
  Transmission Date: 20220423
  Serious: Yes (Disabling)
  Sender: FDA-Public Use
  Company Number: None

PATIENT
  Age: 72 Year
  Sex: Female
  Weight: 56.25 kg

DRUGS (17)
  1. CILOSTAZOL [Suspect]
     Active Substance: CILOSTAZOL
     Indication: Arterial stenosis
     Dosage: OTHER QUANTITY : 1 TABLET(S);?FREQUENCY : DAILY;?
     Route: 048
     Dates: start: 20220214, end: 20220214
  2. Advair Diskus 250/50mcg (1 puff once daily) [Concomitant]
  3. CLONAZEPAM [Concomitant]
     Active Substance: CLONAZEPAM
  4. EPIPEN [Concomitant]
     Active Substance: EPINEPHRINE
  5. Gabapent 100mg (8 tablets once daily) [Concomitant]
  6. Ibuprofen (as needed) [Concomitant]
  7. Lorazepam 0.5mg (1 tablet 5 times daily) [Concomitant]
  8. Losartan (1 tablet once daily) [Concomitant]
  9. VITAMIN D3 [Concomitant]
     Active Substance: CHOLECALCIFEROL
  10. CYSTEINE [Concomitant]
     Active Substance: CYSTEINE
  11. VITAMIN B12 [Concomitant]
     Active Substance: CYANOCOBALAMIN
  12. MAGNESIUM [Concomitant]
     Active Substance: MAGNESIUM
  13. Super Vitamin B Complex [Concomitant]
  14. VITAMIN C [Concomitant]
     Active Substance: ASCORBIC ACID
  15. ZINC [Concomitant]
     Active Substance: ZINC
  16. VITAMIN B1 [Concomitant]
     Active Substance: THIAMINE HYDROCHLORIDE
  17. PROBIOTICS NOS [Concomitant]
     Active Substance: PROBIOTICS NOS

REACTIONS (4)
  - Palpitations [None]
  - Dizziness [None]
  - Headache [None]
  - Diarrhoea [None]

NARRATIVE: CASE EVENT DATE: 20220214
